FAERS Safety Report 6389502-9 (Version None)
Quarter: 2009Q4

REPORT INFORMATION
  Report Type: 
  Country: None (occurrence: None)
  Receive Date: 20091003
  Receipt Date: 20090923
  Transmission Date: 20100525
  Serious: Yes (Hospitalization)
  Sender: FDA-Public Use
  Company Number: AE-909-342

PATIENT
  Age: 47 Year
  Sex: Male
  Weight: 100 kg

DRUGS (15)
  1. LIDODERM [Suspect]
     Indication: PAIN IN EXTREMITY
     Dosage: 1 PATCH A DAY
     Dates: start: 20090914
  2. DIPRIVAN [Concomitant]
  3. ZOSYN [Concomitant]
  4. ACIDPHILUS [Concomitant]
  5. LOVENOX [Concomitant]
  6. PROTONIX [Concomitant]
  7. ENARAPRIL [Concomitant]
  8. ALBUTEROL [Concomitant]
  9. METAMUSIL [Concomitant]
  10. POTASSIUM CHLORIDE [Concomitant]
  11. HALDOL [Concomitant]
  12. LASIX [Concomitant]
  13. ASCORBIC ACID [Concomitant]
  14. VITAMIN E [Concomitant]
  15. SELENIUM [Concomitant]

REACTIONS (1)
  - HYPERTHERMIA MALIGNANT [None]
